FAERS Safety Report 5894183-4 (Version None)
Quarter: 2008Q3

REPORT INFORMATION
  Report Type: 
  Country: None (occurrence: None)
  Receive Date: 20080922
  Receipt Date: 20080908
  Transmission Date: 20090109
  Serious: Yes (Disabling)
  Sender: FDA-Public Use
  Company Number: ALA_00163_2008

PATIENT
  Sex: Female
  Weight: 55.7924 kg

DRUGS (5)
  1. REGLAN [Suspect]
     Indication: SUPPRESSED LACTATION
     Dosage: (10 MG TID ORAL, (10 MG BID ORAL), (10 MG QD, ORAL
     Route: 048
     Dates: start: 20080801, end: 20080804
  2. REGLAN [Suspect]
     Indication: SUPPRESSED LACTATION
     Dosage: (10 MG TID ORAL, (10 MG BID ORAL), (10 MG QD, ORAL
     Route: 048
     Dates: start: 20080713
  3. REGLAN [Suspect]
     Indication: SUPPRESSED LACTATION
     Dosage: (10 MG TID ORAL, (10 MG BID ORAL), (10 MG QD, ORAL
     Route: 048
     Dates: start: 20080801
  4. VITAMIN TAB [Concomitant]
  5. DOCUSATE SODIUM [Concomitant]

REACTIONS (2)
  - DIARRHOEA [None]
  - DRUG EFFECT DECREASED [None]
